FAERS Safety Report 9080243 (Version 2)
Quarter: 2013Q1

REPORT INFORMATION
  Report Type: Spontaneous
  Country: US (occurrence: US)
  Receive Date: 20130130
  Receipt Date: 20130327
  Transmission Date: 20140127
  Serious: No
  Sender: FDA-Public Use
  Company Number: US-B.I. PHARMACEUTICALS,INC./RIDGEFIELD-2013-BI-02481BP

PATIENT
  Age: 69 None
  Sex: Male

DRUGS (3)
  1. SPIRIVA [Suspect]
     Indication: TOBACCO USER
     Route: 055
     Dates: start: 2012
  2. SPIRIVA [Suspect]
     Route: 055
     Dates: start: 201209
  3. VITAMINS [Concomitant]
     Route: 048

REACTIONS (4)
  - Dizziness [Not Recovered/Not Resolved]
  - Fall [Recovered/Resolved]
  - Diplopia [Not Recovered/Not Resolved]
  - Dyspnoea [Recovered/Resolved]
